FAERS Safety Report 24021875 (Version 1)
Quarter: 2024Q2

REPORT INFORMATION
  Report Type: Spontaneous
  Country: IN (occurrence: IN)
  Receive Date: 20240627
  Receipt Date: 20240627
  Transmission Date: 20240716
  Serious: No
  Sender: FDA-Public Use
  Company Number: IN-ROCHE-3538010

PATIENT
  Age: 82 Year
  Sex: Female

DRUGS (2)
  1. VABYSMO [Suspect]
     Active Substance: FARICIMAB\FARICIMAB-SVOA
     Indication: Neovascular age-related macular degeneration
     Dosage: FOR RIGHT EYE
     Route: 050
     Dates: start: 20240227
  2. VABYSMO [Suspect]
     Active Substance: FARICIMAB\FARICIMAB-SVOA
     Dosage: SECOND INFUSION START DATE FOR LEFT EYE: 28-MAR-2024?FOR LEFT EYE
     Route: 050
     Dates: start: 20240302

REACTIONS (2)
  - Off label use [Unknown]
  - No adverse event [Unknown]
